FAERS Safety Report 25216063 (Version 1)
Quarter: 2025Q2

REPORT INFORMATION
  Report Type: Report from Study
  Country: CN (occurrence: CN)
  Receive Date: 20250418
  Receipt Date: 20250418
  Transmission Date: 20250716
  Serious: Yes (Other)
  Sender: ROCHE
  Company Number: CN-ROCHE-10000254646

PATIENT

DRUGS (4)
  1. AVASTIN [Suspect]
     Active Substance: BEVACIZUMAB
     Indication: Colorectal cancer metastatic
     Route: 065
  2. TIPIRACIL HYDROCHLORIDE\TRIFLURIDINE [Suspect]
     Active Substance: TIPIRACIL HYDROCHLORIDE\TRIFLURIDINE
     Indication: Colorectal cancer metastatic
     Route: 065
  3. FRUQUINTINIB [Concomitant]
     Active Substance: FRUQUINTINIB
  4. REGORAFENIB [Concomitant]
     Active Substance: REGORAFENIB

REACTIONS (3)
  - Myelosuppression [Unknown]
  - Decreased appetite [Unknown]
  - Vomiting [Unknown]
